FAERS Safety Report 4418107-1 (Version None)
Quarter: 2004Q3

REPORT INFORMATION
  Report Type: 
  Country: None (occurrence: None)
  Receive Date: 20040805
  Receipt Date: 20040805
  Transmission Date: 20050211
  Serious: Yes (Other)
  Sender: FDA-Public Use
  Company Number: None

PATIENT
  Age: 52 Year
  Sex: Female
  Weight: 77.1115 kg

DRUGS (3)
  1. PROMETHAZINE [Suspect]
     Indication: NAUSEA
     Dosage: 25MG IM X 1 TIME
     Route: 030
     Dates: start: 20040719
  2. DONNATAL [Suspect]
     Indication: MUSCLE CRAMP
     Dosage: 10ML PO X 1 TIME
     Route: 048
     Dates: start: 20040719
  3. DONNATAL [Suspect]
     Indication: MUSCLE SPASMS
     Dosage: 10ML PO X 1 TIME
     Route: 048
     Dates: start: 20040719

REACTIONS (7)
  - ANXIETY [None]
  - DRUG HYPERSENSITIVITY [None]
  - DYSPNOEA [None]
  - EXTRAPYRAMIDAL DISORDER [None]
  - FEELING ABNORMAL [None]
  - NERVOUSNESS [None]
  - TREMOR [None]
